FAERS Safety Report 4805207-7 (Version None)
Quarter: 2005Q4

REPORT INFORMATION
  Report Type: 
  Country: None (occurrence: None)
  Receive Date: 20051017
  Receipt Date: 20051003
  Transmission Date: 20060501
  Serious: Yes (Hospitalization, Disabling)
  Sender: FDA-Public Use
  Company Number: 218261

PATIENT
  Age: 69 Year
  Sex: Male
  Weight: 85.7 kg

DRUGS (18)
  1. AVASTIN              BEVACIZUMZB INC. [Suspect]
     Indication: COLON CANCER METASTATIC
     Dosage: 5 MG/KG, Q2W, INTRAVENOUS
     Route: 042
     Dates: start: 20050330, end: 20050413
  2. FLUOROURACIL [Suspect]
     Indication: COLON CANCER METASTATIC
  3. RADIATION (RADIATION THERAPY) [Suspect]
     Indication: COLON CANCER METASTATIC
     Dates: end: 20050201
  4. OXALIPLATIN (OXALIPLATIN) [Suspect]
     Indication: COLON CANCER METASTATIC
  5. LEUCOVORIN (LECOVORIN CALCIUM) [Concomitant]
  6. PEPCID [Concomitant]
  7. TOPROL-XL [Concomitant]
  8. LIPITOR [Concomitant]
  9. PHENYTOIN [Concomitant]
  10. ASPIRIN [Concomitant]
  11. ZETIA [Concomitant]
  12. SKELAXIN [Concomitant]
  13. NORTRIPTYLINE (NORTRIPTYLINE HYDROCHLORIDE) [Concomitant]
  14. DECADRON [Concomitant]
  15. ALOXI (PALONOSETRON) [Concomitant]
  16. OXYCONTIN [Concomitant]
  17. LACTULOSE [Concomitant]
  18. MOM  (MILK OF MAGNESIA) [Concomitant]

REACTIONS (7)
  - ACTIVITIES OF DAILY LIVING IMPAIRED [None]
  - ANAL ULCER [None]
  - CONSTIPATION [None]
  - IMPAIRED HEALING [None]
  - PROCTALGIA [None]
  - THERAPY NON-RESPONDER [None]
  - WEIGHT DECREASED [None]
